FAERS Safety Report 6653702-0 (Version None)
Quarter: 2010Q1

REPORT INFORMATION
  Report Type: 
  Country: None (occurrence: None)
  Receive Date: 20100326
  Receipt Date: 20081218
  Transmission Date: 20100710
  Serious: Yes (Death)
  Sender: FDA-Public Use
  Company Number: KR-PFIZER INC-2008157179

PATIENT
  Age: 71 Year
  Sex: Male
  Weight: 54 kg

DRUGS (16)
  1. IRINOTECAN HCL [Suspect]
     Indication: COLORECTAL CANCER
     Dosage: 184 MG, FREQUENCY: EVERY 2 WEEKS;
     Route: 042
     Dates: start: 20080605, end: 20081204
  2. BLINDED *NO SUBJECT DRUG [Suspect]
     Indication: COLORECTAL CANCER
     Dosage: 37.5 MG, 4 WEEKS TREATMENT
     Route: 048
     Dates: start: 20080605, end: 20081203
  3. BLINDED *PLACEBO [Suspect]
     Indication: COLORECTAL CANCER
     Dosage: 37.5 MG, 4 WEEKS TREATMENT
     Route: 048
     Dates: start: 20080605, end: 20081203
  4. BLINDED SUNITINIB MALATE [Suspect]
     Indication: COLORECTAL CANCER
     Dosage: 37.5 MG, 4 WEEKS TREATMENT
     Route: 048
     Dates: start: 20080605, end: 20081203
  5. *FLUOROURACIL [Suspect]
     Indication: COLORECTAL CANCER
     Dosage: 410 MG: EVERY 2 WEEKS;
     Route: 040
     Dates: start: 20080605, end: 20081206
  6. *FLUOROURACIL [Suspect]
     Dosage: 2458 MG, EVERY 2 WEEKS
     Route: 042
     Dates: start: 20080605, end: 20081206
  7. *CALCIUM FOLINATE [Suspect]
     Indication: COLORECTAL CANCER
     Dosage: 640 MG: EVERY 2 WEEKS;
     Route: 042
     Dates: start: 20080605, end: 20081204
  8. LOPERAMIDE [Concomitant]
     Indication: DIARRHOEA
     Dosage: 4 MG, 3X/DAY
     Dates: start: 20081204
  9. OXYCODONE HYDROCHLORIDE [Concomitant]
     Indication: CANCER PAIN
     Dosage: 5 MG, 4X/DAY
     Dates: start: 20080524
  10. ALUMINIUM MAGNESIUM SILICATE [Concomitant]
     Indication: DIARRHOEA
     Dosage: 3 G, 3X/DAY
     Dates: start: 20081204
  11. MEGESTROL [Concomitant]
     Indication: DECREASED APPETITE
     Dosage: 400 MG, 2X/DAY
     Dates: start: 20080605
  12. FLUCONAZOLE [Concomitant]
     Indication: OROPHARYNGEAL PAIN
     Dosage: 100 MG, 1X/DAY
     Dates: start: 20081204, end: 20081210
  13. NYSTATIN [Concomitant]
     Indication: OROPHARYNGEAL PAIN
     Dosage: 4 ML, 4X/DAY
     Dates: start: 20081204
  14. ONDANSETRON [Concomitant]
     Indication: PROPHYLAXIS OF NAUSEA AND VOMITING
     Dosage: 8 MG, UNK
     Dates: start: 20081204, end: 20081204
  15. DEXAMETHASONE [Concomitant]
     Indication: PROPHYLAXIS
     Dosage: 10 MG, 1X/DAY
     Dates: start: 20081204, end: 20081204
  16. ATROPINE [Concomitant]
     Indication: PROPHYLAXIS
     Dosage: 0.25 MG, 1X/DAY
     Dates: start: 20081204, end: 20081204

REACTIONS (1)
  - DEATH [None]
